FAERS Safety Report 6743336-1 (Version None)
Quarter: 2010Q2

REPORT INFORMATION
  Report Type: 
  Country: None (occurrence: None)
  Receive Date: 20100527
  Receipt Date: 20100512
  Transmission Date: 20101027
  Serious: Yes (Hospitalization)
  Sender: FDA-Public Use
  Company Number: ES-ELI_LILLY_AND_COMPANY-ES201005003039

PATIENT
  Sex: Female
  Weight: 40 kg

DRUGS (5)
  1. FORTEO [Suspect]
     Indication: OSTEONECROSIS
     Dosage: 20 UG, DAILY (1/D)
     Route: 058
     Dates: start: 20100227
  2. ATORVASTATIN CALCIUM [Concomitant]
     Indication: HYPERCHOLESTEROLAEMIA
     Dosage: UNK, DAILY (1/D)
     Route: 048
  3. HIERRO [Concomitant]
     Indication: HAEMORRHAGE
     Dosage: UNK, DAILY (1/D)
     Route: 048
  4. METRONIDAZOLE [Concomitant]
     Dosage: UNK, 3/D
     Route: 048
  5. NATECAL [Concomitant]
     Dosage: UNK, 2/D
     Route: 048

REACTIONS (2)
  - OVARIAN ABSCESS [None]
  - PYREXIA [None]
